FAERS Safety Report 7344589-1 (Version None)
Quarter: 2011Q1

REPORT INFORMATION
  Report Type: 
  Country: None (occurrence: None)
  Receive Date: 20110307
  Receipt Date: 20110307
  Transmission Date: 20110831
  Serious: No
  Sender: FDA-Public Use
  Company Number: None

PATIENT
  Age: 45 Year
  Sex: Female
  Weight: 61.6892 kg

DRUGS (1)
  1. ACTONEL [Suspect]
     Indication: OSTEOPENIA
     Dosage: 1 TABLET ONE MONTHLY PO
     Route: 048
     Dates: start: 20110201, end: 20110301

REACTIONS (6)
  - PYREXIA [None]
  - TREMOR [None]
  - CHILLS [None]
  - MUSCLE TIGHTNESS [None]
  - ABDOMINAL PAIN UPPER [None]
  - MUSCLE SPASMS [None]
